FAERS Safety Report 13990339 (Version 1)
Quarter: 2017Q3

REPORT INFORMATION
  Report Type: Report from Study
  Country: IL (occurrence: IL)
  Receive Date: 20170920
  Receipt Date: 20170920
  Transmission Date: 20171128
  Serious: Yes (Other)
  Sender: FDA-Public Use
  Company Number: IL-MYLANLABS-2017M1058199

PATIENT
  Age: 52 Year
  Sex: Female

DRUGS (4)
  1. CISPLATIN. [Suspect]
     Active Substance: CISPLATIN
     Indication: GASTRIC CANCER
     Dosage: 30 MG/M2 ON DAY 1 AND 8
     Route: 042
     Dates: start: 20090423
  2. XELODA [Suspect]
     Active Substance: CAPECITABINE
     Indication: GASTRIC CANCER
     Dosage: 1600 MG/M2; DIVIDED INTO TWO DAILY DOSES; ON DAY 1 TO 14, IN 3-WEEK CYCLES
     Route: 048
     Dates: start: 20090423
  3. AVASTIN                            /00848101/ [Suspect]
     Active Substance: SIMVASTATIN
     Indication: GASTRIC CANCER
     Dosage: 7.5 MG/KG ON DAY 1
     Route: 042
     Dates: start: 20090423
  4. TAXOTERE [Suspect]
     Active Substance: DOCETAXEL
     Indication: GASTRIC CANCER
     Dosage: 30 MG/M2 ON DAY 1 AND 8
     Route: 042
     Dates: start: 20090323

REACTIONS (13)
  - Nausea [Unknown]
  - Abdominal pain upper [Unknown]
  - Dysphagia [Unknown]
  - Fatigue [Unknown]
  - Diarrhoea [Unknown]
  - Dysgeusia [Unknown]
  - Neuropathy peripheral [Unknown]
  - Weight decreased [Unknown]
  - Pain [Unknown]
  - Palmar-plantar erythrodysaesthesia syndrome [Unknown]
  - Embolism venous [Unknown]
  - Alopecia [Unknown]
  - Decreased appetite [Unknown]
